FAERS Safety Report 11467019 (Version 1)
Quarter: 2015Q3

REPORT INFORMATION
  Report Type: Spontaneous
  Country: US (occurrence: US)
  Receive Date: 20150908
  Receipt Date: 20150908
  Transmission Date: 20151125
  Serious: Yes (Other)
  Sender: FDA-Public Use
  Company Number: US-PFIZER INC-2015287747

PATIENT
  Age: 54 Year
  Sex: Female
  Weight: 82 kg

DRUGS (3)
  1. LYRICA [Suspect]
     Active Substance: PREGABALIN
     Indication: NERVE INJURY
     Dosage: 100 MG, 3X/DAY (ONE THREE TIMES A DAY)
     Dates: start: 2015, end: 20150820
  2. MELOXICAM. [Concomitant]
     Active Substance: MELOXICAM
     Dosage: UNK
  3. METHOCARBAMOL. [Concomitant]
     Active Substance: METHOCARBAMOL
     Dosage: UNK

REACTIONS (13)
  - Neoplasm malignant [Unknown]
  - Peripheral swelling [Unknown]
  - Ear swelling [Unknown]
  - Bone pain [Unknown]
  - Pain in extremity [Recovering/Resolving]
  - Pain [Unknown]
  - Cheilitis [Unknown]
  - Myalgia [Unknown]
  - Paraesthesia [Recovering/Resolving]
  - Heart sounds abnormal [Unknown]
  - Lip swelling [Unknown]
  - Rash [Unknown]
  - Fat redistribution [Unknown]

NARRATIVE: CASE EVENT DATE: 2015
